FAERS Safety Report 7106462-3 (Version None)
Quarter: 2010Q4

REPORT INFORMATION
  Report Type: 
  Country: None (occurrence: None)
  Receive Date: 20101116
  Receipt Date: 20101104
  Transmission Date: 20110411
  Serious: Yes (Life-Threatening, Hospitalization)
  Sender: FDA-Public Use
  Company Number: GB-PFIZER INC-GB-WYE-G06561510

PATIENT
  Age: 41 Year
  Sex: Male
  Weight: 66.7 kg

DRUGS (9)
  1. EFFEXOR XR [Suspect]
     Indication: DEPRESSION
     Dosage: 75 MG, 1X/DAY
     Route: 048
     Dates: start: 20041001, end: 20080101
  2. EFFEXOR XR [Suspect]
     Dosage: 300 MG, 1X/DAY
     Route: 048
     Dates: start: 20080101, end: 20090101
  3. EFFEXOR XR [Suspect]
     Dosage: 225 MG, 1X/DAY
     Route: 048
     Dates: start: 20090101, end: 20100601
  4. MIRTAZAPINE [Concomitant]
     Indication: DEPRESSION
     Dosage: 45 MG, 1X/DAY
     Route: 048
  5. SIMVASTATIN [Concomitant]
     Indication: BLOOD CHOLESTEROL INCREASED
     Dosage: 40 MG, 1X/DAY
     Route: 048
  6. ACETYLSALICYLIC ACID [Concomitant]
     Indication: CHEST PAIN
     Dosage: 75 MG, 1X/DAY
     Route: 048
  7. LEVOTHYROXINE SODIUM [Concomitant]
     Indication: THYROID DISORDER
     Dosage: 75 UG, 1X/DAY
     Route: 048
  8. PHENYTOIN [Concomitant]
     Indication: CONVULSION
     Dosage: 300 MG, 1X/DAY
     Route: 048
  9. ZOLPIDEM [Concomitant]
     Indication: INSOMNIA
     Dosage: 10 MG, 1X/DAY
     Route: 048

REACTIONS (6)
  - AGITATION [None]
  - CHEST PAIN [None]
  - CONVULSION [None]
  - FALL [None]
  - OEDEMA PERIPHERAL [None]
  - RENAL FAILURE [None]
